FAERS Safety Report 24452338 (Version 1)
Quarter: 2024Q4

REPORT INFORMATION
  Report Type: Spontaneous
  Country: ES (occurrence: ES)
  Receive Date: 20241017
  Receipt Date: 20241017
  Transmission Date: 20250114
  Serious: Yes (Hospitalization)
  Sender: ABBVIE
  Company Number: None

PATIENT
  Age: 49 Year
  Sex: Female

DRUGS (5)
  1. AVIBACTAM SODIUM\CEFTAZIDIME [Suspect]
     Active Substance: AVIBACTAM SODIUM\CEFTAZIDIME
     Indication: Infection
     Dosage: UNK
     Route: 042
     Dates: start: 20230808, end: 20230809
  2. VANCOMYCIN [Concomitant]
     Active Substance: VANCOMYCIN
     Indication: Infection
     Dosage: UNK
     Route: 042
     Dates: start: 20230808
  3. Boi k aspartico [Concomitant]
     Indication: Hypokalaemia
     Dosage: UNK
     Route: 048
     Dates: start: 20230808
  4. QUETIAPINA COMBIX [Concomitant]
     Indication: Agitation
     Dosage: UNK
     Route: 048
     Dates: start: 20230808
  5. CLONIDINE [Concomitant]
     Active Substance: CLONIDINE
     Indication: Hypertension
     Dosage: UNK MG
     Route: 048
     Dates: start: 20230808

REACTIONS (1)
  - Drug-induced liver injury [Recovered/Resolved]

NARRATIVE: CASE EVENT DATE: 20230808
